FAERS Safety Report 9204284 (Version 1)
Quarter: 2013Q1

REPORT INFORMATION
  Report Type: Spontaneous
  Country: US (occurrence: None)
  Receive Date: 20120709
  Receipt Date: 20120709
  Transmission Date: 20140127
  Serious: No
  Sender: FDA-Public Use
  Company Number: 2012HGS-003379

PATIENT
  Age: 27 Year
  Sex: Female
  Weight: 77.11 kg

DRUGS (12)
  1. BENLYSTA [Suspect]
     Dosage: 1 IN 28 D
     Route: 041
  2. METOPROLOL (METOPROLOL) (METOPROLOL) [Concomitant]
  3. COUMADIN (WARFARIN SODIUM) (WARFARIN SODIUM) [Concomitant]
  4. LUNESTA (ESZOPICLONE) (ESZOPICLONE) [Concomitant]
  5. PREDNISONE (PREDNISONE) (PREDNISONE) [Concomitant]
  6. FOLIC ACID (FOLIC ACID) (FOLIC ACID) [Concomitant]
  7. PLAQUENIL (HYDROCHLOROQUINE) (HYDROCHLORQUINE) [Concomitant]
  8. ASMANEX [Concomitant]
  9. IPATROPIUM (IPATROPIUM) (IPATROPIUM) [Concomitant]
  10. DEPO-PROVERA (MEDROXYPROGESTERONE ACETATE) (MEDROXYPROGESTERONE ACETATE) [Concomitant]
  11. NEXIUM (ESOMEPRAZOLE MAGNESIUM) (ESOPMEPRAZOLE MAGNESIUM) [Concomitant]
  12. MULTIVITAMINS (MULTIVITAMINS) (ERGOCALCIFEROL, ASCORBIC ACID, FOLIC ACID, THIAMINE HYDROCHLORIDE,RETINOL,RIBOFLAVIN, NICOTINAMIDE, PANTHENOL) [Concomitant]

REACTIONS (1)
  - Weight increased [None]
